FAERS Safety Report 6210807-6 (Version None)
Quarter: 2009Q2

REPORT INFORMATION
  Report Type: 
  Country: None (occurrence: None)
  Receive Date: 20090601
  Receipt Date: 20090521
  Transmission Date: 20091009
  Serious: Yes (Hospitalization)
  Sender: FDA-Public Use
  Company Number: US-AVENTIS-200915273GDDC

PATIENT
  Age: 49 Year
  Sex: Female
  Weight: 89.81 kg

DRUGS (5)
  1. TAXOTERE [Suspect]
     Indication: TONGUE NEOPLASM MALIGNANT STAGE UNSPECIFIED
     Dosage: DOSE: UNK
     Route: 042
  2. PROCRIT                            /00909301/ [Suspect]
     Dates: end: 20090204
  3. CISPLATIN [Suspect]
     Indication: TONGUE NEOPLASM MALIGNANT STAGE UNSPECIFIED
     Dosage: DOSE: UNK
  4. FLUOROURACIL [Suspect]
     Indication: TONGUE NEOPLASM MALIGNANT STAGE UNSPECIFIED
     Dosage: DOSE: UNK
  5. RADIATION THERAPY [Suspect]
     Indication: TONGUE NEOPLASM MALIGNANT STAGE UNSPECIFIED

REACTIONS (6)
  - FOOD INTOLERANCE [None]
  - GASTROSTOMY TUBE INSERTION [None]
  - INADEQUATE DIET [None]
  - MUCOSAL INFLAMMATION [None]
  - NAUSEA [None]
  - VOMITING [None]
